FAERS Safety Report 8895578 (Version 1)
Quarter: 2012Q4

REPORT INFORMATION
  Report Type: 
  Country: CH (occurrence: CH)
  Receive Date: 20121108
  Receipt Date: 20121108
  Transmission Date: 20130627
  Serious: Yes (Hospitalization)
  Sender: FDA-Public Use
  Company Number: CH-GLAXOSMITHKLINE-B0842944A

PATIENT
  Age: 74 Year
  Sex: Female

DRUGS (9)
  1. DEROXAT [Suspect]
     Indication: PRODUCT USED FOR UNKNOWN INDICATION
     Dosage: 20MG Per day
     Route: 048
  2. IRFEN [Suspect]
     Indication: PRODUCT USED FOR UNKNOWN INDICATION
     Dosage: 800MG Per day
     Route: 048
  3. ASPIRIN CARDIO [Concomitant]
     Dosage: 100MG Per day
     Route: 048
  4. MICARDIS [Concomitant]
     Dosage: 40MG Per day
     Route: 048
  5. GINKGO BILOBA [Concomitant]
     Route: 048
  6. LORAMET [Concomitant]
     Dosage: 2MG Per day
     Route: 048
  7. HYPERICUM PERFORATUM [Concomitant]
     Route: 048
  8. CONDROSULF [Concomitant]
     Route: 048
  9. DAFALGAN [Concomitant]
     Dosage: 500MG Three times per day
     Route: 048

REACTIONS (1)
  - Dermatitis [Not Recovered/Not Resolved]
